FAERS Safety Report 4458223-1 (Version None)
Quarter: 2004Q3

REPORT INFORMATION
  Report Type: 
  Country: None (occurrence: None)
  Receive Date: 20040922
  Receipt Date: 20040906
  Transmission Date: 20050211
  Serious: Yes (Life-Threatening, Hospitalization)
  Sender: FDA-Public Use
  Company Number: DE-2004-028148

PATIENT
  Age: 33 Year
  Sex: Female

DRUGS (1)
  1. MIRENA [Suspect]
     Indication: CONTRACEPTION
     Dosage: 20 UG, CONT, INTRA-UTERINE
     Route: 015
     Dates: start: 20010101, end: 20040630

REACTIONS (12)
  - ALLERGIC GRANULOMATOUS ANGIITIS [None]
  - ARTHRALGIA [None]
  - ASTHMA [None]
  - HEADACHE [None]
  - MULTIPLE ALLERGIES [None]
  - NERVOUS SYSTEM DISORDER [None]
  - PAIN IN EXTREMITY [None]
  - SENSORY DISTURBANCE [None]
  - SKIN DISORDER [None]
  - SUBARACHNOID HAEMORRHAGE [None]
  - VASCULITIS CEREBRAL [None]
  - WEIGHT DECREASED [None]
